FAERS Safety Report 14120314 (Version 4)
Quarter: 2018Q1

REPORT INFORMATION
  Report Type: Report from Study
  Country: US (occurrence: US)
  Receive Date: 20171024
  Receipt Date: 20180123
  Transmission Date: 20180508
  Serious: Yes (Hospitalization)
  Sender: FDA-Public Use
  Company Number: PHHO2017US014657

PATIENT
  Age: 13 Year
  Sex: Female

DRUGS (22)
  1. METHOTREXATE. [Suspect]
     Active Substance: METHOTREXATE
     Indication: ACUTE LYMPHOCYTIC LEUKAEMIA
     Dosage: 15 MG, ONCE/SINGLE
     Route: 037
     Dates: start: 20170927, end: 20170927
  2. METHOTREXATE. [Suspect]
     Active Substance: METHOTREXATE
     Dosage: 275 MG, ONCE/SINGLE
     Route: 042
     Dates: start: 20171006, end: 20171006
  3. BENADRYL [Concomitant]
     Active Substance: DIPHENHYDRAMINE HYDROCHLORIDE
     Indication: VOMITING
  4. ROXICODONE [Concomitant]
     Active Substance: OXYCODONE HYDROCHLORIDE
     Indication: PAIN
     Dosage: 5 MG, Q4H AS NEEDED
     Route: 048
     Dates: start: 20170202
  5. REGLAN [Concomitant]
     Active Substance: METOCLOPRAMIDE HYDROCHLORIDE
     Indication: VOMITING
  6. SENNA [Concomitant]
     Active Substance: SENNA LEAF\SENNOSIDES\SENNOSIDES A AND B
     Indication: CONSTIPATION PROPHYLAXIS
     Dosage: 17.2 MG, AT BEDTIME AS NEEDED
     Route: 048
     Dates: start: 20170802
  7. ONDANSETRON [Concomitant]
     Active Substance: ONDANSETRON
     Indication: VOMITING
  8. BENADRYL [Concomitant]
     Active Substance: DIPHENHYDRAMINE HYDROCHLORIDE
     Indication: NAUSEA
     Dosage: 25-50 MG, Q6H AS NEEDED
     Route: 065
     Dates: start: 20170228
  9. EMLA [Concomitant]
     Active Substance: LIDOCAINE\PRILOCAINE
     Indication: APPLICATION SITE ANAESTHESIA
     Dosage: 2.5 G, 1 HOUR BEFORE PAINFUL PROCEDURE
     Route: 061
     Dates: start: 20170202
  10. PEGASPARGASE [Suspect]
     Active Substance: PEGASPARGASE
     Indication: ACUTE LYMPHOCYTIC LEUKAEMIA
     Dosage: 4600 IU, ONCE/SINGLE
     Route: 042
     Dates: start: 20170928, end: 20170928
  11. LANTUS [Concomitant]
     Active Substance: INSULIN GLARGINE
     Indication: GLUCOSE TOLERANCE IMPAIRED
     Dosage: 16 UT, QD
     Route: 058
     Dates: start: 20170918
  12. ONDANSETRON [Concomitant]
     Active Substance: ONDANSETRON
     Indication: NAUSEA
     Dosage: 8 MG, Q8H, PRN
     Route: 048
     Dates: start: 20170202
  13. REGLAN [Concomitant]
     Active Substance: METOCLOPRAMIDE HYDROCHLORIDE
     Indication: NAUSEA
     Dosage: 20 MG, Q6H, AS NEEDED
     Route: 048
     Dates: start: 20170228
  14. SCOPOLAMINE [Concomitant]
     Active Substance: SCOPOLAMINE
     Indication: NAUSEA
     Dosage: 1 PATCH, CHANGE EVERY 3 DAYS
     Route: 061
     Dates: start: 20170228
  15. VINCRISTINE [Suspect]
     Active Substance: VINCRISTINE
     Indication: ACUTE LYMPHOCYTIC LEUKAEMIA
     Dosage: 2 MG, ONCE/SINGLE
     Route: 042
     Dates: start: 20171006
  16. PROVERA [Concomitant]
     Active Substance: MEDROXYPROGESTERONE ACETATE
     Indication: PROPHYLAXIS
     Dosage: 10 MG, QD
     Route: 048
     Dates: start: 20170906
  17. LISPRO INSULIN [Concomitant]
     Active Substance: INSULIN LISPRO
     Indication: GLUCOSE TOLERANCE IMPAIRED
     Dosage: PER BLOOD GLUCOSE LEVEL, WITH MEALS
     Route: 058
     Dates: start: 20171011
  18. MAGNESIUM CARBONATE [Concomitant]
     Active Substance: MAGNESIUM CARBONATE
     Indication: HYPOMAGNESAEMIA
     Dosage: UNK
     Route: 065
  19. INC424A [Suspect]
     Active Substance: RUXOLITINIB
     Indication: ACUTE LYMPHOCYTIC LEUKAEMIA
     Dosage: 70 MG, BID
     Route: 048
     Dates: start: 20170927, end: 20171007
  20. BACTRIM [Concomitant]
     Active Substance: SULFAMETHOXAZOLE\TRIMETHOPRIM
     Indication: ANTIFUNGAL PROPHYLAXIS
     Dosage: 160 MG, BID
     Route: 048
     Dates: start: 20170130
  21. MIRALAX [Concomitant]
     Active Substance: POLYETHYLENE GLYCOL 3350
     Indication: CONSTIPATION PROPHYLAXIS
     Dosage: 17 G, ONCE OR TWICE DAILY
     Route: 048
     Dates: start: 20170202
  22. ACYCLOVIR. [Concomitant]
     Active Substance: ACYCLOVIR
     Indication: MUCOSAL INFLAMMATION
     Dosage: 800 MG, UNK
     Route: 048
     Dates: start: 20170527

REACTIONS (1)
  - Colitis [Recovered/Resolved]

NARRATIVE: CASE EVENT DATE: 20171011
